FAERS Safety Report 7710110-9 (Version None)
Quarter: 2011Q3

REPORT INFORMATION
  Report Type: 
  Country: None (occurrence: None)
  Receive Date: 20110825
  Receipt Date: 20110816
  Transmission Date: 20111222
  Serious: Yes (Other)
  Sender: FDA-Public Use
  Company Number: US-BAYER-2011-020904

PATIENT
  Age: 44 Year
  Sex: Female
  Weight: 99.32 kg

DRUGS (7)
  1. YAZ [Suspect]
     Indication: PRODUCT USED FOR UNKNOWN INDICATION
     Dosage: UNK
     Dates: start: 20080101, end: 20090301
  2. LOPRESSOR [Concomitant]
     Dosage: 100 MG, BID
  3. YASMIN [Suspect]
     Indication: PRODUCT USED FOR UNKNOWN INDICATION
     Dosage: UNK
     Dates: start: 20080101, end: 20090301
  4. DROSPIRENONE AND ETHINYL ESTRADIOL [Suspect]
     Indication: PRODUCT USED FOR UNKNOWN INDICATION
     Dosage: UNK
     Dates: start: 20080101, end: 20090301
  5. AMARYL [Concomitant]
     Dosage: 4 MG, QD
  6. DIOVAN [Concomitant]
     Dosage: 320 MG, QD
  7. GLUCOPHAGE [Concomitant]
     Dosage: 500 MG, QD

REACTIONS (5)
  - ANXIETY [None]
  - THROMBOSIS [None]
  - PAIN [None]
  - DEEP VEIN THROMBOSIS [None]
  - EMOTIONAL DISTRESS [None]
